FAERS Safety Report 7953690-0 (Version None)
Quarter: 2011Q4

REPORT INFORMATION
  Report Type: 
  Country: None (occurrence: None)
  Receive Date: 20111202
  Receipt Date: 20111126
  Transmission Date: 20120403
  Serious: Yes (Other)
  Sender: FDA-Public Use
  Company Number: US-CEPHALON-US013283

PATIENT
  Sex: Male

DRUGS (1)
  1. PROVIGIL [Suspect]
     Indication: SOMNOLENCE
     Route: 048

REACTIONS (2)
  - ECG SIGNS OF MYOCARDIAL ISCHAEMIA [None]
  - ARRHYTHMIA [None]
